FAERS Safety Report 7157392-2 (Version None)
Quarter: 2010Q4

REPORT INFORMATION
  Report Type: 
  Country: None (occurrence: None)
  Receive Date: 20101214
  Receipt Date: 20101201
  Transmission Date: 20110411
  Serious: Yes (Congenital Anomaly)
  Sender: FDA-Public Use
  Company Number: A0681160A

PATIENT
  Sex: Male
  Weight: 3 kg

DRUGS (1)
  1. PAXIL [Suspect]

REACTIONS (7)
  - APLASIA [None]
  - CLINODACTYLY [None]
  - COARCTATION OF THE AORTA [None]
  - CONGENITAL HAND MALFORMATION [None]
  - DRUG EXPOSURE DURING PREGNANCY [None]
  - FONTANELLE BULGING [None]
  - LIMB MALFORMATION [None]
